FAERS Safety Report 11712164 (Version 1)
Quarter: 2015Q4

REPORT INFORMATION
  Report Type: Spontaneous
  Country: US (occurrence: US)
  Receive Date: 20151104
  Receipt Date: 20151104
  Transmission Date: 20160304
  Serious: No
  Sender: FDA-Public Use
  Company Number: US-ELI_LILLY_AND_COMPANY-US201107001201

PATIENT
  Sex: Male

DRUGS (1)
  1. FORTEO [Suspect]
     Active Substance: TERIPARATIDE
     Indication: OSTEOPOROSIS
     Dosage: 20 UG, QD
     Route: 065
     Dates: end: 20110601

REACTIONS (7)
  - Tremor [Unknown]
  - Malaise [Unknown]
  - Euphoric mood [Unknown]
  - Feeling abnormal [Unknown]
  - Dizziness [Unknown]
  - Injection site pain [Unknown]
  - Asthenia [Unknown]
